FAERS Safety Report 7995416-0 (Version None)
Quarter: 2011Q4

REPORT INFORMATION
  Report Type: 
  Country: None (occurrence: None)
  Receive Date: 20111220
  Receipt Date: 20111209
  Transmission Date: 20120403
  Serious: Yes (Hospitalization)
  Sender: FDA-Public Use
  Company Number: US-BAXTER-2011BH038750

PATIENT
  Sex: Female

DRUGS (2)
  1. DIANEAL [Suspect]
     Indication: PERITONEAL DIALYSIS
     Route: 033
  2. DIANEAL [Suspect]
     Indication: PERITONEAL DIALYSIS
     Route: 033

REACTIONS (8)
  - PROCEDURAL PAIN [None]
  - ABDOMINAL DISTENSION [None]
  - DYSPNOEA [None]
  - PYREXIA [None]
  - DISCOMFORT [None]
  - EATING DISORDER [None]
  - ABDOMINAL DISCOMFORT [None]
  - ASTHENIA [None]
